APPROVED DRUG PRODUCT: TAVABOROLE
Active Ingredient: TAVABOROLE
Strength: 5%
Dosage Form/Route: SOLUTION;TOPICAL
Application: A212256 | Product #001
Applicant: AMNEAL PHARMACEUTICALS LLC
Approved: Nov 25, 2020 | RLD: No | RS: No | Type: DISCN